FAERS Safety Report 13474480 (Version 3)
Quarter: 2018Q1

REPORT INFORMATION
  Report Type: Report from Study
  Country: AU (occurrence: AU)
  Receive Date: 20170424
  Receipt Date: 20180131
  Transmission Date: 20180508
  Serious: Yes (Hospitalization, Other)
  Sender: FDA-Public Use
  Company Number: AU-MYLANLABS-2017M1024444

PATIENT
  Age: 52 Year
  Sex: Male

DRUGS (14)
  1. SOFOSBUVIR [Interacting]
     Active Substance: SOFOSBUVIR
     Indication: HEPATITIS C
     Dosage: 400 MG, QD
     Route: 048
     Dates: start: 20141205, end: 20150127
  2. PARACETAMOL [Concomitant]
     Active Substance: ACETAMINOPHEN
     Indication: PRODUCT USED FOR UNKNOWN INDICATION
     Dosage: 1 G, QID
  3. SENNA                              /00142201/ [Concomitant]
     Active Substance: SENNA LEAF
     Indication: CONSTIPATION
     Dosage: 2 DF, QD
     Route: 048
  4. RISPERIDONE. [Suspect]
     Active Substance: RISPERIDONE
     Indication: PRODUCT USED FOR UNKNOWN INDICATION
     Dosage: 3 MG, BID
     Route: 048
  5. CLOZAPINE. [Interacting]
     Active Substance: CLOZAPINE
     Dosage: 800 MG
     Route: 048
  6. CLOZAPINE. [Interacting]
     Active Substance: CLOZAPINE
     Dosage: 200 MG, BID
     Route: 048
     Dates: start: 201411
  7. LORAZEPAM. [Concomitant]
     Active Substance: LORAZEPAM
     Indication: PRODUCT USED FOR UNKNOWN INDICATION
     Dosage: 2 MG, BID
  8. DACLATASVIR. [Suspect]
     Active Substance: DACLATASVIR
     Indication: PRODUCT USED FOR UNKNOWN INDICATION
  9. OLANZAPINE. [Concomitant]
     Active Substance: OLANZAPINE
     Indication: PRODUCT USED FOR UNKNOWN INDICATION
     Dosage: UNK
  10. CLOZAPINE. [Interacting]
     Active Substance: CLOZAPINE
     Indication: SCHIZOPHRENIA
     Dosage: UNK
     Route: 048
     Dates: start: 19930903
  11. CLOZAPINE. [Interacting]
     Active Substance: CLOZAPINE
     Dosage: 100 MG, BID
     Route: 048
     Dates: start: 201411
  12. DOCUSATE [Concomitant]
     Active Substance: DOCUSATE
     Indication: CONSTIPATION
     Dosage: 2 DF, QD
     Route: 048
  13. OLANZAPINE. [Concomitant]
     Active Substance: OLANZAPINE
     Dosage: 20 MG, PM
  14. CLOZAPINE. [Interacting]
     Active Substance: CLOZAPINE
     Dosage: 200 MG, BID
     Route: 048
     Dates: start: 201411

REACTIONS (39)
  - Mania [Unknown]
  - Pericardial effusion [Unknown]
  - Chronic obstructive pulmonary disease [Unknown]
  - Antipsychotic drug level increased [Unknown]
  - Anxiety [Unknown]
  - Hepatic function abnormal [Unknown]
  - Rash pruritic [Unknown]
  - Blood triglycerides increased [Recovered/Resolved]
  - Agranulocytosis [Unknown]
  - Chronic kidney disease [Recovering/Resolving]
  - Sepsis [Unknown]
  - Nephrotic syndrome [Recovering/Resolving]
  - Pleural effusion [Unknown]
  - Hypersensitivity [Unknown]
  - Normocytic anaemia [Unknown]
  - Splenomegaly [Unknown]
  - Chronic hepatitis C [Unknown]
  - Hyperkalaemia [Unknown]
  - Lymphoma [Unknown]
  - Schizophrenia [Unknown]
  - Left ventricular dilatation [Unknown]
  - Hypomania [Unknown]
  - Ejection fraction decreased [Unknown]
  - Lethargy [Unknown]
  - Malaise [Unknown]
  - Cryoglobulinaemia [Unknown]
  - Bone marrow failure [Unknown]
  - Renal failure [Recovering/Resolving]
  - Blood cholesterol increased [Recovered/Resolved]
  - Aortic valve incompetence [Unknown]
  - Drug interaction [Unknown]
  - Antipsychotic drug level decreased [Not Recovered/Not Resolved]
  - Dyspnoea exertional [Unknown]
  - Skin ulcer [Not Recovered/Not Resolved]
  - Staphylococcal bacteraemia [Unknown]
  - Gastrooesophageal reflux disease [Unknown]
  - Low density lipoprotein increased [Recovered/Resolved]
  - Speech disorder [Unknown]
  - Total cholesterol/HDL ratio increased [Recovered/Resolved]

NARRATIVE: CASE EVENT DATE: 2014
